FAERS Safety Report 23162844 (Version 1)
Quarter: 2023Q4

REPORT INFORMATION
  Report Type: Spontaneous
  Country: GB (occurrence: GB)
  Receive Date: 20231109
  Receipt Date: 20231109
  Transmission Date: 20240110
  Serious: Yes (Other)
  Sender: FDA-Public Use
  Company Number: None

PATIENT
  Age: 59 Year
  Sex: Female

DRUGS (1)
  1. OMEPRAZOLE [Suspect]
     Active Substance: OMEPRAZOLE
     Indication: Gastric residual assessment
     Dates: start: 2020, end: 2023

REACTIONS (5)
  - Itching scar [Recovering/Resolving]
  - Vulval haemorrhage [Recovered/Resolved]
  - Swelling [Recovered/Resolved]
  - Skin fissures [Recovered/Resolved]
  - Medication error [Unknown]
